FAERS Safety Report 5774628-0 (Version None)
Quarter: 2008Q2

REPORT INFORMATION
  Report Type: 
  Country: None (occurrence: None)
  Receive Date: 20080616
  Receipt Date: 20080604
  Transmission Date: 20081010
  Serious: Yes (Hospitalization)
  Sender: FDA-Public Use
  Company Number: FR-ABBOTT-08P-056-0443931-00

PATIENT
  Sex: Male
  Weight: 82 kg

DRUGS (5)
  1. NIASPAN [Suspect]
     Indication: DRUG USE FOR UNKNOWN INDICATION
     Dates: start: 20060901, end: 20080201
  2. ACETYLSALICYLATE LYSINE [Suspect]
     Indication: PROPHYLAXIS
     Route: 048
     Dates: start: 20060101
  3. SOTALOL HCL [Concomitant]
     Indication: TACHYCARDIA
     Dates: start: 20060101
  4. ATORVASTATIN CALCIUM [Concomitant]
     Indication: PROPHYLAXIS
     Route: 048
     Dates: start: 20060101
  5. GLICLAZIDE [Concomitant]
     Indication: DIABETES MELLITUS
     Route: 048
     Dates: start: 20040101

REACTIONS (6)
  - BONE MARROW DISORDER [None]
  - GINGIVAL BLEEDING [None]
  - PLATELET COUNT DECREASED [None]
  - PYREXIA [None]
  - RED BLOOD CELL COUNT DECREASED [None]
  - WHITE BLOOD CELL COUNT DECREASED [None]
